FAERS Safety Report 9634259 (Version 1)
Quarter: 2013Q4

REPORT INFORMATION
  Report Type: Spontaneous
  Country: US (occurrence: US)
  Receive Date: 20131021
  Receipt Date: 20131021
  Transmission Date: 20140711
  Serious: Yes (Other)
  Sender: FDA-Public Use
  Company Number: US-JNJFOC-20131009069

PATIENT
  Sex: Male

DRUGS (3)
  1. DOXORUBICIN HYDROCHLORIDE [Suspect]
     Indication: HEAD AND NECK CANCER
     Route: 042
  2. DACTINOMYCIN [Suspect]
     Indication: HEAD AND NECK CANCER
     Route: 065
  3. RADIOTHERAPY [Suspect]
     Indication: HEAD AND NECK CANCER
     Dosage: 5238 CGY (R 4140-6600)
     Route: 065

REACTIONS (3)
  - Mucosal inflammation [Unknown]
  - Dermatitis [Unknown]
  - Off label use [Unknown]
